FAERS Safety Report 23340446 (Version 1)
Quarter: 2023Q4

REPORT INFORMATION
  Report Type: Spontaneous
  Country: MX (occurrence: None)
  Receive Date: 20231227
  Receipt Date: 20231227
  Transmission Date: 20240110
  Serious: Yes (Disabling, Other)
  Sender: FDA-Public Use
  Company Number: MX-ROCHE-3480855

PATIENT
  Sex: Female

DRUGS (4)
  1. OCREVUS [Suspect]
     Active Substance: OCRELIZUMAB
     Indication: Multiple sclerosis
     Route: 065
     Dates: start: 2022
  2. OCREVUS [Suspect]
     Active Substance: OCRELIZUMAB
     Route: 065
     Dates: start: 2022
  3. DIPHENHYDRAMINE [Concomitant]
     Active Substance: DIPHENHYDRAMINE
     Indication: Premedication
     Dosage: FREQUENCY WAS NOT REPORTED
     Route: 042
  4. METHYLPREDNISOLONE [Concomitant]
     Active Substance: METHYLPREDNISOLONE
     Indication: Premedication
     Dosage: FREQUENCY WAS NOT REPORTED
     Route: 042

REACTIONS (7)
  - Urinary incontinence [Unknown]
  - Wheelchair user [Unknown]
  - Nystagmus [Unknown]
  - Muscle spasticity [Unknown]
  - Ataxia [Unknown]
  - Dysmetria [Unknown]
  - Visual field defect [Unknown]
